FAERS Safety Report 11245569 (Version 2)
Quarter: 2015Q3

REPORT INFORMATION
  Report Type: Spontaneous
  Country: GB (occurrence: GB)
  Receive Date: 20150707
  Receipt Date: 20150820
  Transmission Date: 20151125
  Serious: Yes (Other)
  Sender: FDA-Public Use
  Company Number: PHHY2015GB077403

PATIENT

DRUGS (4)
  1. CLARITHROMYCIN. [Suspect]
     Active Substance: CLARITHROMYCIN
     Indication: GASTRITIS EROSIVE
     Dosage: 500 MG, BID
     Route: 048
     Dates: start: 20150408
  2. AMOXICILLIN. [Suspect]
     Active Substance: AMOXICILLIN
     Indication: GASTRITIS EROSIVE
     Dosage: 1000 MG, BID
     Route: 048
     Dates: start: 20150408
  3. LANSOPRAZOLE. [Suspect]
     Active Substance: LANSOPRAZOLE
     Indication: GASTRITIS EROSIVE
     Dosage: 30 MG, BID
     Route: 048
     Dates: start: 20150408
  4. RALOXIFENE HYDROCHLORIDE. [Concomitant]
     Active Substance: RALOXIFENE HYDROCHLORIDE
     Indication: PRODUCT USED FOR UNKNOWN INDICATION
     Route: 065

REACTIONS (10)
  - Musculoskeletal stiffness [Recovered/Resolved]
  - Product label issue [Unknown]
  - Fatigue [Recovered/Resolved]
  - Malaise [Recovered/Resolved]
  - Headache [Recovered/Resolved]
  - Blister [Recovered/Resolved with Sequelae]
  - Drug interaction [Unknown]
  - Nausea [Recovered/Resolved]
  - Photosensitivity reaction [Recovered/Resolved with Sequelae]
  - Rash macular [Recovered/Resolved with Sequelae]

NARRATIVE: CASE EVENT DATE: 20150408
